FAERS Safety Report 4356064-7 (Version None)
Quarter: 2004Q2

REPORT INFORMATION
  Report Type: 
  Country: None (occurrence: None)
  Receive Date: 20040511
  Receipt Date: 20040507
  Transmission Date: 20050107
  Serious: Yes (Hospitalization)
  Sender: FDA-Public Use
  Company Number: AU-MERCK-0405AUS00047

PATIENT
  Age: 53 Year
  Sex: Male

DRUGS (8)
  1. MODURETIC 5-50 [Concomitant]
     Route: 048
  2. BECLOMETHASONE DIPROPIONATE [Concomitant]
     Route: 065
  3. FLUTICASONE PROPIONATE AND SALMETEROL XINAFOATE [Concomitant]
     Route: 065
  4. QUININE BISULFATE [Concomitant]
     Route: 065
  5. RABEPRAZOLE SODIUM [Concomitant]
     Route: 065
  6. VIOXX [Suspect]
     Indication: OSTEOARTHRITIS
     Route: 048
     Dates: start: 20021001, end: 20040401
  7. SILDENAFIL CITRATE [Concomitant]
     Route: 065
  8. ZOCOR [Concomitant]
     Route: 048

REACTIONS (2)
  - ANGIOGRAM ABNORMAL [None]
  - MYOCARDIAL INFARCTION [None]
